FAERS Safety Report 13688804 (Version 1)
Quarter: 2017Q2

REPORT INFORMATION
  Report Type: Spontaneous
  Country: US (occurrence: US)
  Receive Date: 20170623
  Receipt Date: 20170623
  Transmission Date: 20170830
  Serious: Yes (Death, Life-Threatening, Hospitalization)
  Sender: FDA-Public Use
  Company Number: None

PATIENT
  Age: 58 Year
  Sex: Male
  Weight: 117 kg

DRUGS (1)
  1. OTEZLA [Suspect]
     Active Substance: APREMILAST
     Indication: PSORIASIS

REACTIONS (13)
  - Viral upper respiratory tract infection [None]
  - Agitation [None]
  - Pyrexia [None]
  - Pulmonary thrombosis [None]
  - Gastric haemorrhage [None]
  - Sepsis [None]
  - Diabetes mellitus [None]
  - Renal failure [None]
  - Influenza [None]
  - Blood glucose increased [None]
  - Lactic acidosis [None]
  - Chills [None]
  - Confusional state [None]

NARRATIVE: CASE EVENT DATE: 20170604
